FAERS Safety Report 5010649-3 (Version None)
Quarter: 2006Q2

REPORT INFORMATION
  Report Type: 
  Country: None (occurrence: None)
  Receive Date: 20060525
  Receipt Date: 20060523
  Transmission Date: 20061013
  Serious: Yes (Other)
  Sender: FDA-Public Use
  Company Number: US-JNJFOC-20060401507

PATIENT
  Sex: Female
  Weight: 72.58 kg

DRUGS (20)
  1. LEVAQUIN [Suspect]
     Indication: SINUSITIS
     Route: 048
  2. AVINZA [Concomitant]
  3. PERCOCET [Concomitant]
  4. PERCOCET [Concomitant]
  5. VALIUM [Concomitant]
  6. SINGULAIR [Concomitant]
  7. CALAN [Concomitant]
  8. ELAVIL [Concomitant]
  9. LEXAPRO [Concomitant]
  10. CALCIUM GLUCONATE [Concomitant]
  11. UNIPHYL [Concomitant]
  12. NASONEX [Concomitant]
  13. ADVAIR DISKUS 100/50 [Concomitant]
  14. ADVAIR DISKUS 100/50 [Concomitant]
  15. PROVENTIL [Concomitant]
  16. FOSOMAX [Concomitant]
  17. LIDODERM [Concomitant]
  18. MIRALAX [Concomitant]
  19. AMBIEN [Concomitant]
     Indication: INSOMNIA
  20. ZYRTEC [Concomitant]

REACTIONS (8)
  - ARTHRALGIA [None]
  - DEPRESSION [None]
  - FACTOR VII DEFICIENCY [None]
  - FACTOR VIII DEFICIENCY [None]
  - MYALGIA [None]
  - PAIN IN EXTREMITY [None]
  - PLATELET AGGREGATION ABNORMAL [None]
  - TENDONITIS [None]
